FAERS Safety Report 9773514 (Version 4)
Quarter: 2014Q1

REPORT INFORMATION
  Report Type: Report from Study
  Country: FR (occurrence: FR)
  Receive Date: 20131219
  Receipt Date: 20140306
  Transmission Date: 20141002
  Serious: Yes (Death, Life-Threatening, Hospitalization, Other)
  Sender: FDA-Public Use
  Company Number: FR-ABBVIE-13P-056-1115664-00

PATIENT
  Age: 74 Year
  Sex: Female

DRUGS (9)
  1. HUMIRA [Suspect]
     Indication: CROHN^S DISEASE
     Route: 058
     Dates: start: 20080818, end: 20080818
  2. HUMIRA [Suspect]
     Dates: start: 200808, end: 200808
  3. HUMIRA [Suspect]
     Route: 058
     Dates: start: 2008, end: 201011
  4. HUMIRA [Suspect]
     Route: 058
     Dates: start: 20101118, end: 20130623
  5. LANTUS [Concomitant]
     Indication: TYPE 2 DIABETES MELLITUS
     Route: 042
     Dates: start: 1969
  6. PROZAC [Concomitant]
     Indication: DEPRESSION
     Dosage: 1 CP
     Dates: start: 200902
  7. CORTANCYL [Concomitant]
     Indication: ARTHRITIS
     Dates: start: 20090914
  8. IMODIUM [Concomitant]
     Indication: DIARRHOEA
     Dosage: 1 BAG
     Dates: start: 201104
  9. ALL OTHER NON-THERAPEUTIC PRODUCTS [Concomitant]
     Indication: RENAL FAILURE CHRONIC
     Dosage: 3 PER WEEK
     Dates: start: 201101

REACTIONS (5)
  - Septic shock [Fatal]
  - Intervertebral discitis [Recovered/Resolved]
  - Staphylococcal infection [Recovered/Resolved]
  - Nervous system disorder [Recovered/Resolved]
  - Pyrexia [Recovered/Resolved]
